FAERS Safety Report 6235139-1 (Version None)
Quarter: 2009Q2

REPORT INFORMATION
  Report Type: 
  Country: None (occurrence: None)
  Receive Date: 20090618
  Receipt Date: 20090612
  Transmission Date: 20091009
  Serious: Yes (Hospitalization, Other)
  Sender: FDA-Public Use
  Company Number: GB-AVENTIS-200720582GDDC

PATIENT
  Age: 13 Year
  Sex: Male

DRUGS (5)
  1. LANTUS [Suspect]
     Route: 058
     Dates: start: 20051101
  2. AUTOPEN 24 [Suspect]
     Route: 058
  3. DISTILLED WATER [Suspect]
  4. NOVOLOG [Concomitant]
  5. NOVORAPID [Concomitant]
     Dosage: DOSE: 3 DOSES
     Dates: start: 20051101

REACTIONS (8)
  - ABDOMINAL PAIN [None]
  - BLOOD GLUCOSE INCREASED [None]
  - DIABETIC KETOACIDOSIS [None]
  - INJECTION SITE PAIN [None]
  - MALAISE [None]
  - MEDICATION ERROR [None]
  - PRODUCT QUALITY ISSUE [None]
  - VOMITING [None]
